FAERS Safety Report 8717819 (Version 2)
Quarter: 2013Q1

REPORT INFORMATION
  Report Type: Spontaneous
  Country: BR (occurrence: BR)
  Receive Date: 20120810
  Receipt Date: 20130313
  Transmission Date: 20140127
  Serious: Yes (Hospitalization, Other)
  Sender: FDA-Public Use
  Company Number: PHHY2012BR068678

PATIENT
  Age: 82 Year
  Sex: Female
  Weight: 42 kg

DRUGS (5)
  1. EXELON PATCH [Suspect]
     Indication: DEMENTIA ALZHEIMER^S TYPE
     Dosage: 13.3 MG, ONE PATCH PER DAY
     Route: 062
  2. EXELON [Suspect]
     Dosage: 2.5 ML, Q12H
     Route: 048
  3. EXELON [Suspect]
     Dosage: 4.5 ML, Q12H
     Route: 048
  4. EXELON [Suspect]
     Dosage: 6 ML, Q12H
     Route: 048
  5. PROPIL [Concomitant]
     Indication: HYPERTENSION
     Dosage: 1 DF, A DAY
     Route: 048

REACTIONS (5)
  - Gastrointestinal infection [Recovered/Resolved]
  - Dehydration [Recovered/Resolved]
  - Delirium [Recovered/Resolved]
  - Apathy [Recovered/Resolved]
  - Confusional state [Recovered/Resolved]
